FAERS Safety Report 5136867-1 (Version None)
Quarter: 2006Q4

REPORT INFORMATION
  Report Type: 
  Country: None (occurrence: None)
  Receive Date: 20061023
  Receipt Date: 20061006
  Transmission Date: 20070319
  Serious: Yes (Death)
  Sender: FDA-Public Use
  Company Number: 8019463

PATIENT
  Age: 72 Year
  Sex: Female
  Weight: 90 kg

DRUGS (1)
  1. KEPPRA [Suspect]
     Indication: STATUS EPILEPTICUS
     Dosage: 1000 MG 2/D IV
     Route: 042
     Dates: start: 20060911, end: 20060913

REACTIONS (4)
  - BRAIN OEDEMA [None]
  - COMA [None]
  - SEPSIS [None]
  - STATUS EPILEPTICUS [None]
